FAERS Safety Report 9254720 (Version 4)
Quarter: 2013Q3

REPORT INFORMATION
  Report Type: Spontaneous
  Country: RU (occurrence: RU)
  Receive Date: 20130425
  Receipt Date: 20130820
  Transmission Date: 20140515
  Serious: Yes (Hospitalization, Other)
  Sender: FDA-Public Use
  Company Number: RU-PFIZER INC-2013126666

PATIENT
  Age: 25 Year
  Sex: Female
  Weight: 46 kg

DRUGS (1)
  1. DOSTINEX [Suspect]
     Indication: HYPERPROLACTINAEMIA
     Dosage: 0.25 MG (1/2 OF 0.5 MG TABLET), 2X/WEEK
     Route: 048
     Dates: start: 201211, end: 201304

REACTIONS (5)
  - Ascites [Recovering/Resolving]
  - Hepatic fibrosis [Not Recovered/Not Resolved]
  - Pericardial effusion [Recovering/Resolving]
  - Hepatitis infectious [Not Recovered/Not Resolved]
  - Transmission of an infectious agent via product [Not Recovered/Not Resolved]
